FAERS Safety Report 5162787-2 (Version None)
Quarter: 2006Q4

REPORT INFORMATION
  Report Type: 
  Country: None (occurrence: None)
  Receive Date: 20061201
  Receipt Date: 20061130
  Transmission Date: 20070319
  Serious: Yes (Other)
  Sender: FDA-Public Use
  Company Number: US-GLAXOSMITHKLINE-A0629600A

PATIENT
  Age: 86 Year
  Sex: Female

DRUGS (5)
  1. DEBROX DROPS [Suspect]
     Indication: CERUMEN IMPACTION
     Dates: start: 20061129, end: 20061129
  2. ATENOLOL [Concomitant]
  3. PEPCID [Concomitant]
  4. MULTIVITAMIN [Concomitant]
  5. TEMAZEPAM [Concomitant]

REACTIONS (1)
  - DEAFNESS TRANSITORY [None]
